FAERS Safety Report 12072367 (Version 1)
Quarter: 2016Q1

REPORT INFORMATION
  Report Type: Spontaneous
  Country: US (occurrence: US)
  Receive Date: 20160212
  Receipt Date: 20160212
  Transmission Date: 20160526
  Serious: Yes (Other)
  Sender: FDA-Public Use
  Company Number: US-FRESENIUS KABI-FK201600682

PATIENT
  Sex: Female

DRUGS (1)
  1. DEXAMETHASONE SODIUM PHOSPHATE INJECTION, USP [Suspect]
     Active Substance: DEXAMETHASONE SODIUM PHOSPHATE
     Indication: PLANTAR FASCIITIS
     Route: 061
     Dates: start: 20160208, end: 20160208

REACTIONS (7)
  - Paraesthesia [Recovering/Resolving]
  - Lip swelling [Recovering/Resolving]
  - Product use issue [Unknown]
  - Palpitations [Recovering/Resolving]
  - Erythema [Recovering/Resolving]
  - Peripheral swelling [Recovering/Resolving]
  - Blood pressure increased [Unknown]

NARRATIVE: CASE EVENT DATE: 20160208
